FAERS Safety Report 8895459 (Version 2)
Quarter: 2013Q2

REPORT INFORMATION
  Report Type: Report from Study
  Country: DE (occurrence: DE)
  Receive Date: 20121107
  Receipt Date: 20130531
  Transmission Date: 20140414
  Serious: Yes (Hospitalization)
  Sender: FDA-Public Use
  Company Number: CHPA2012DE022993

PATIENT
  Sex: Female

DRUGS (20)
  1. DIMETINDENE MALEATE [Suspect]
     Dosage: 4 MG, UNK
     Route: 042
     Dates: start: 20120419
  2. DIMETINDENE MALEATE [Suspect]
     Dosage: 4 MG, UNK
     Route: 042
     Dates: start: 20120503
  3. URBASON//METHYLPREDNISOLONE SODIUM SUCCINATE [Suspect]
     Indication: DYSPNOEA
     Dosage: 100 MG, 1X
     Route: 042
  4. URBASON//METHYLPREDNISOLONE SODIUM SUCCINATE [Suspect]
     Dosage: 1000 MG, 1 IN 1 D
     Route: 042
     Dates: start: 20120831, end: 20120904
  5. PLACEBO [Suspect]
     Indication: MULTIPLE SCLEROSIS
     Dosage: UNK, 1X
     Route: 042
  6. BENSERAZIDE [Concomitant]
     Indication: RESTLESS LEGS SYNDROME
     Dosage: 25 MG, BID
     Route: 048
     Dates: start: 20120607
  7. IBUPROFEN [Concomitant]
     Indication: HEADACHE
     Dosage: 600 MG, QD
     Route: 048
     Dates: start: 20120429, end: 20120429
  8. IBUPROFEN [Concomitant]
     Dosage: 400 MG, UNK
     Route: 048
     Dates: start: 20130116
  9. LEVODOPA [Concomitant]
     Dosage: 200 MG, BID
     Route: 048
     Dates: start: 20120607
  10. PARACETAMOL [Concomitant]
     Dosage: 1000 MG, UNK
     Route: 042
     Dates: start: 20120419
  11. PARACETAMOL [Concomitant]
     Dosage: 1000 MG, UNK
     Route: 042
     Dates: start: 20120503
  12. RANITIC [Concomitant]
     Dosage: 50 MG, UNK
     Route: 042
     Dates: start: 20120419
  13. RANITIC [Concomitant]
     Dosage: 50 MG, UNK
     Route: 042
     Dates: start: 20120503
  14. ZOLMITRIPTAN [Concomitant]
     Indication: HEADACHE
     Dosage: 5 MG, UNK
     Route: 048
     Dates: start: 20120503, end: 20120503
  15. PREGABALIN [Concomitant]
     Indication: RESTLESS LEGS SYNDROME
     Dosage: 50 MG, UNK
     Dates: start: 201209
  16. BACLOFEN [Concomitant]
     Indication: MULTIPLE SCLEROSIS
     Dosage: 5 MG, QD
     Dates: start: 20120902
  17. TRIAMCINOLONE [Concomitant]
     Indication: MULTIPLE SCLEROSIS
     Dosage: 40 MG, QD
     Dates: start: 20130115, end: 20130115
  18. TRIAMCINOLONE [Concomitant]
     Dosage: 40 MG, QD
     Dates: start: 20121016, end: 20121016
  19. TRIAMCINOLONE [Concomitant]
     Dosage: 40 MG, QD
     Dates: start: 20121128, end: 20121128
  20. ANTIBIOTICS [Concomitant]

REACTIONS (4)
  - Dyspnoea [Recovered/Resolved]
  - Fatigue [None]
  - Malaise [None]
  - Pain [None]
